FAERS Safety Report 23774910 (Version 4)
Quarter: 2024Q2

REPORT INFORMATION
  Report Type: Spontaneous
  Country: JP (occurrence: JP)
  Receive Date: 20240423
  Receipt Date: 20240610
  Transmission Date: 20240716
  Serious: Yes (Death, Hospitalization, Other)
  Sender: FDA-Public Use
  Company Number: JP-GENMAB-2024-01342

PATIENT
  Age: 8 Decade
  Sex: Male

DRUGS (15)
  1. EPKINLY [Suspect]
     Active Substance: EPCORITAMAB-BYSP
     Indication: Diffuse large B-cell lymphoma
     Dosage: 0.16 MILLIGRAM, SINGLE
     Route: 058
     Dates: start: 20240206, end: 20240206
  2. PREDNISOLONE [Concomitant]
     Active Substance: PREDNISOLONE
     Indication: Prophylaxis
     Dosage: 100 MILLIGRAM/DAY, DAY 1, DAY 2, DAY 3 AND DAY 4 OF ADMINISTRATION OF EPKINLY SUBCUTANEOUS INJECTION
     Route: 048
     Dates: start: 20240206, end: 20240209
  3. DIPHENHYDRAMINE [Concomitant]
     Active Substance: DIPHENHYDRAMINE
     Indication: Prophylaxis
     Dosage: 10 MILLIGRAM, ON DAY 1OF ADMINISTRATION OF EPKINLY SUBCUTANEOUS INJECTION (EPCORITAMAB) (GENETICAL R
     Dates: start: 20240206, end: 20240206
  4. CALONAL [Concomitant]
     Active Substance: ACETAMINOPHEN
     Indication: Pain
     Dosage: UNK, CONTINUOUS ADMINISTRATION BEFORE STARTING EPKINLY SUBCUTANEOUS INJECTION (EPCORITAMAB) (GENETIC
  5. CALONAL [Concomitant]
     Active Substance: ACETAMINOPHEN
     Indication: Prophylaxis
     Dosage: 500 MILLIGRAM, ON DAY 1OF ADMINISTRATION OF EPKINLY SUBCUTANEOUS INJECTION (EPCORITAMAB) (GENETICAL
  6. RASBURICASE [Concomitant]
     Active Substance: RASBURICASE
     Indication: Prophylaxis
     Dosage: COMBINATION WITH RASURITEK, SOLULACT, SOLDEM 1, SOLDEM 3A, ONE WEEK AFTER STARTING EPKINLY SUBCUTANE
     Dates: start: 20240206, end: 20240212
  7. RASBURICASE [Concomitant]
     Active Substance: RASBURICASE
     Indication: Prophylaxis
  8. RASBURICASE [Concomitant]
     Active Substance: RASBURICASE
     Indication: Fluid replacement
  9. CALCIUM CHLORIDE\POTASSIUM CHLORIDE\SODIUM CHLORIDE\SODIUM LACTATE [Concomitant]
     Active Substance: CALCIUM CHLORIDE\POTASSIUM CHLORIDE\SODIUM CHLORIDE\SODIUM LACTATE
     Indication: Fluid replacement
     Dosage: COMBINATION WITH RASURITEK, SOLULACT, SOLDEM 1, SOLDEM 3A, ONE WEEK AFTER STARTING EPKINLY SUBCUTANE
     Dates: start: 20240206, end: 20240212
  10. DEXTROSE\SODIUM CHLORIDE\SODIUM LACTATE [Concomitant]
     Active Substance: DEXTROSE\SODIUM CHLORIDE\SODIUM LACTATE
     Indication: Fluid replacement
     Dosage: COMBINATION WITH RASURITEK, SOLULACT, SOLDEM 1, SOLDEM 3A, FLUID REPLACEMENT WAS CHANGED FROM SOLDEM
     Dates: start: 20240207, end: 20240212
  11. SOLDEM 3A [Concomitant]
     Active Substance: CARBOHYDRATES\POTASSIUM CHLORIDE\SODIUM CHLORIDE\SODIUM LACTATE
     Indication: Fluid replacement
     Dosage: COMBINATION WITH RASURITEK, SOLULACT, SOLDEM 1, SOLDEM 3A, FLUID REPLACEMENT WAS CHANGED FROM SOLDEM
     Dates: start: 20240206, end: 20240206
  12. FEBUXOSTAT [Concomitant]
     Active Substance: FEBUXOSTAT
     Indication: Prophylaxis
     Dosage: 400 MILLIGRAM/DAY, ORAL ADMINISTRATION
  13. ENALAPRIL [Concomitant]
     Active Substance: ENALAPRIL
     Indication: Hypertension
     Dosage: UNK
     Route: 048
     Dates: start: 20240205, end: 20240211
  14. LINAGLIPTIN [Concomitant]
     Active Substance: LINAGLIPTIN
     Indication: Diabetes mellitus
     Dosage: ORAL ADMINISTRATION, QOD
     Route: 048
  15. DIPYRIDAMOLE [Concomitant]
     Active Substance: DIPYRIDAMOLE
     Dosage: ORAL ADMINISTRATION
     Route: 048

REACTIONS (7)
  - Loss of consciousness [Unknown]
  - Cytokine release syndrome [Not Recovered/Not Resolved]
  - Gastrointestinal haemorrhage [Fatal]
  - Diffuse large B-cell lymphoma [Fatal]
  - Back pain [Unknown]
  - Decreased appetite [Unknown]
  - Nausea [Unknown]

NARRATIVE: CASE EVENT DATE: 20240201
